FAERS Safety Report 19580523 (Version 2)
Quarter: 2021Q3

REPORT INFORMATION
  Report Type: Spontaneous
  Country: US (occurrence: US)
  Receive Date: 20210719
  Receipt Date: 20210727
  Transmission Date: 20211014
  Serious: Yes (Other)
  Sender: FDA-Public Use
  Company Number: US-ELI_LILLY_AND_COMPANY-US202107003561

PATIENT
  Age: 55 Year
  Sex: Female

DRUGS (10)
  1. BASAGLAR [Suspect]
     Active Substance: INSULIN GLARGINE
     Indication: PRODUCT USED FOR UNKNOWN INDICATION
     Dosage: 32 U, DAILY
     Route: 065
     Dates: start: 2018
  2. BASAGLAR [Suspect]
     Active Substance: INSULIN GLARGINE
     Indication: PRODUCT USED FOR UNKNOWN INDICATION
     Dosage: 32 U, DAILY
     Route: 065
     Dates: start: 2018
  3. BASAGLAR [Suspect]
     Active Substance: INSULIN GLARGINE
     Dosage: 34 U, DAILY
     Route: 065
     Dates: start: 2018
  4. BASAGLAR [Suspect]
     Active Substance: INSULIN GLARGINE
     Dosage: 32 U, DAILY
     Route: 065
     Dates: start: 2018
  5. BASAGLAR [Suspect]
     Active Substance: INSULIN GLARGINE
     Dosage: 34 U, DAILY
     Route: 065
     Dates: start: 2018
  6. METFORMIN [Concomitant]
     Active Substance: METFORMIN HYDROCHLORIDE
     Indication: PRODUCT USED FOR UNKNOWN INDICATION
     Dosage: 150 MG, UNKNOWN
  7. BASAGLAR [Suspect]
     Active Substance: INSULIN GLARGINE
     Indication: PRODUCT USED FOR UNKNOWN INDICATION
     Dosage: 32 U, DAILY
     Route: 065
     Dates: start: 2018
  8. BASAGLAR [Suspect]
     Active Substance: INSULIN GLARGINE
     Dosage: 32 U, DAILY
     Route: 065
     Dates: start: 2018
  9. BASAGLAR [Suspect]
     Active Substance: INSULIN GLARGINE
     Dosage: 32 U, DAILY
     Route: 065
     Dates: start: 2018
  10. BASAGLAR [Suspect]
     Active Substance: INSULIN GLARGINE
     Dosage: 34 U, DAILY
     Route: 065
     Dates: start: 2018

REACTIONS (25)
  - Vomiting [Unknown]
  - Stress [Unknown]
  - Diabetic neuropathy [Unknown]
  - Product dose omission issue [Unknown]
  - Cataract [Unknown]
  - Glycosylated haemoglobin increased [Unknown]
  - Influenza [Unknown]
  - Blood glucose increased [Unknown]
  - Overweight [Unknown]
  - Bile duct stone [Unknown]
  - Jaundice [Unknown]
  - Eye infection [Unknown]
  - Hypoglycaemia [Unknown]
  - Glaucoma [Unknown]
  - Malaise [Unknown]
  - Nausea [Unknown]
  - Biliary colic [Unknown]
  - Gastrointestinal disorder [Unknown]
  - Fuchs^ syndrome [Unknown]
  - Back pain [Unknown]
  - Chromaturia [Unknown]
  - Microalbuminuria [Unknown]
  - Diabetic retinopathy [Unknown]
  - Blood bilirubin increased [Unknown]
  - Migraine [Unknown]

NARRATIVE: CASE EVENT DATE: 20190702
